FAERS Safety Report 18202805 (Version 1)
Quarter: 2020Q3

REPORT INFORMATION
  Report Type: Spontaneous
  Country: JP (occurrence: JP)
  Receive Date: 20200827
  Receipt Date: 20200827
  Transmission Date: 20201103
  Serious: Yes (Hospitalization, Other)
  Sender: FDA-Public Use
  Company Number: JP-PFIZER INC-2020328226

PATIENT
  Age: 27 Year
  Sex: Female

DRUGS (2)
  1. LEUCOVORIN. [Suspect]
     Active Substance: LEUCOVORIN
     Dosage: UNK
     Dates: start: 20200823
  2. METHOTREXATE. [Suspect]
     Active Substance: METHOTREXATE
     Indication: ENDOCRINE DISORDER
     Dosage: 30 MG
     Route: 051
     Dates: start: 20200817, end: 20200821

REACTIONS (5)
  - Myelosuppression [Unknown]
  - Pyrexia [Unknown]
  - Stomatitis [Unknown]
  - Toxic skin eruption [Not Recovered/Not Resolved]
  - Drug eruption [Not Recovered/Not Resolved]

NARRATIVE: CASE EVENT DATE: 20200821
